FAERS Safety Report 6853701-X (Version None)
Quarter: 2010Q3

REPORT INFORMATION
  Report Type: 
  Country: None (occurrence: None)
  Receive Date: 20100717
  Receipt Date: 20071214
  Transmission Date: 20110219
  Serious: No
  Sender: FDA-Public Use
  Company Number: US-PFIZER INC-2007106658

PATIENT
  Sex: Female
  Weight: 52.272 kg

DRUGS (5)
  1. CHANTIX [Suspect]
     Indication: SMOKING CESSATION THERAPY
     Dates: start: 20071207
  2. ATIVAN [Concomitant]
  3. GEODON [Concomitant]
  4. LAMICTAL [Concomitant]
  5. LEXAPRO [Concomitant]

REACTIONS (1)
  - ABDOMINAL DISCOMFORT [None]
